FAERS Safety Report 8947705 (Version 4)
Quarter: 2013Q2

REPORT INFORMATION
  Report Type: Spontaneous
  Country: US (occurrence: US)
  Receive Date: 20121204
  Receipt Date: 20130425
  Transmission Date: 20140414
  Serious: No
  Sender: FDA-Public Use
  Company Number: US-009507513-1212USA000620

PATIENT
  Sex: Female
  Weight: 90.25 kg

DRUGS (1)
  1. IMPLANON [Suspect]
     Dosage: UNK

REACTIONS (2)
  - Surgery [Unknown]
  - Medical device complication [Unknown]
